FAERS Safety Report 11009260 (Version 2)
Quarter: 2015Q2

REPORT INFORMATION
  Report Type: Spontaneous
  Country: US (occurrence: US)
  Receive Date: 20150410
  Receipt Date: 20150522
  Transmission Date: 20150821
  Serious: No
  Sender: FDA-Public Use
  Company Number: US-PFIZER INC-2015119864

PATIENT
  Age: 46 Year
  Sex: Female

DRUGS (1)
  1. LYRICA [Suspect]
     Active Substance: PREGABALIN
     Dosage: 200 MG, 2X/DAY

REACTIONS (5)
  - Fatigue [Recovered/Resolved]
  - Pain [Recovered/Resolved]
  - Malaise [Recovered/Resolved]
  - Drug withdrawal syndrome [Recovered/Resolved]
  - Paraesthesia [Recovered/Resolved]
